FAERS Safety Report 6804953-3 (Version None)
Quarter: 2010Q2

REPORT INFORMATION
  Report Type: 
  Country: None (occurrence: None)
  Receive Date: 20100628
  Receipt Date: 20070709
  Transmission Date: 20101027
  Serious: No
  Sender: FDA-Public Use
  Company Number: US-PFIZER INC-2007056220

PATIENT
  Sex: Female
  Weight: 54.1 kg

DRUGS (5)
  1. GEODON [Suspect]
     Indication: ANXIETY
     Dates: start: 20070401
  2. GEODON [Suspect]
     Indication: DEPRESSION
  3. PROZAC [Concomitant]
  4. LAMICTAL [Concomitant]
  5. KLONOPIN [Concomitant]

REACTIONS (6)
  - DRUG ADMINISTRATION ERROR [None]
  - DRY MOUTH [None]
  - FEELING ABNORMAL [None]
  - INSOMNIA [None]
  - NASAL CONGESTION [None]
  - NIGHTMARE [None]
